FAERS Safety Report 6657500-3 (Version None)
Quarter: 2010Q1

REPORT INFORMATION
  Report Type: 
  Country: None (occurrence: None)
  Receive Date: 20100326
  Receipt Date: 20100315
  Transmission Date: 20100710
  Serious: Yes (Hospitalization, Other)
  Sender: FDA-Public Use
  Company Number: WAES 1003USA02877

PATIENT
  Age: 82 Year
  Sex: Female

DRUGS (19)
  1. ZOCOR [Suspect]
     Dosage: 40 MG/DAILY/PO
     Route: 048
     Dates: end: 20091102
  2. BLINDED THERAPY [Suspect]
     Indication: THROMBOSIS PROPHYLAXIS
     Route: 065
     Dates: start: 20091020, end: 20091025
  3. ADVAIR DISKUS 100/50 [Concomitant]
  4. BLINDED THERAPY [Suspect]
     Indication: THROMBOSIS PROPHYLAXIS
     Dosage: 2 DOSE/ DAILY/ PO
     Route: 048
     Dates: start: 20091020, end: 20091025
  5. BLINDED THERAPY [Suspect]
     Indication: THROMBOSIS PROPHYLAXIS
     Dosage: 1 ML/DAILY/SC
     Route: 058
     Dates: start: 20091020, end: 20091025
  6. CELEXA [Concomitant]
  7. ACETAMINOPHEN [Concomitant]
  8. ALBUTEROL SULFATE AUTOHALER [Concomitant]
  9. ALPRAZOLAM [Concomitant]
  10. ASCORBIC ACID [Concomitant]
  11. ASPIRIN [Concomitant]
  12. BENZONATATE [Concomitant]
  13. CALCIUM CARBONATE [Concomitant]
  14. CARVEDILOL [Concomitant]
  15. CHOLECALCIFEROL [Concomitant]
  16. CLARITHROMYCIN [Concomitant]
  17. DOCUSATE SODIUM [Concomitant]
  18. IPRATROPIUM BROMIDE [Concomitant]
  19. SOLIFENACIN SUCCINATE [Concomitant]

REACTIONS (23)
  - ACTIVATED PARTIAL THROMBOPLASTIN TIME PROLONGED [None]
  - ALANINE AMINOTRANSFERASE INCREASED [None]
  - ASPARTATE AMINOTRANSFERASE INCREASED [None]
  - BLOOD ALBUMIN DECREASED [None]
  - BLOOD ALKALINE PHOSPHATASE INCREASED [None]
  - BLOOD CREATINE PHOSPHOKINASE INCREASED [None]
  - BLOOD CREATINE PHOSPHOKINASE MB INCREASED [None]
  - BRAIN NATRIURETIC PEPTIDE INCREASED [None]
  - BUNDLE BRANCH BLOCK RIGHT [None]
  - DEMYELINATING POLYNEUROPATHY [None]
  - ELECTROCARDIOGRAM T WAVE INVERSION [None]
  - HAEMATOCRIT DECREASED [None]
  - HAEMOGLOBIN DECREASED [None]
  - HEPATIC CONGESTION [None]
  - INTERNATIONAL NORMALISED RATIO INCREASED [None]
  - JOINT SWELLING [None]
  - LUMBAR RADICULOPATHY [None]
  - LYMPHOCYTE COUNT DECREASED [None]
  - MEAN PLATELET VOLUME DECREASED [None]
  - MUSCULAR WEAKNESS [None]
  - MYOCARDIAL INFARCTION [None]
  - RED BLOOD CELLS CSF POSITIVE [None]
  - SPLENOMEGALY [None]
